APPROVED DRUG PRODUCT: PROTAMINE SULFATE
Active Ingredient: PROTAMINE SULFATE
Strength: 50MG/VIAL
Dosage Form/Route: POWDER;INTRAVENOUS
Application: N007413 | Product #001
Applicant: PHARMACIA AND UPJOHN CO
Approved: Approved Prior to Jan 1, 1982 | RLD: No | RS: No | Type: DISCN